FAERS Safety Report 4588761-2 (Version None)
Quarter: 2005Q1

REPORT INFORMATION
  Report Type: 
  Country: None (occurrence: None)
  Receive Date: 20050222
  Receipt Date: 20050211
  Transmission Date: 20050727
  Serious: Yes (Hospitalization)
  Sender: FDA-Public Use
  Company Number: FR-JNJFOC-20050204106

PATIENT
  Age: 83 Year
  Sex: Female

DRUGS (9)
  1. TOPALGIC [Suspect]
     Indication: DRUG USE FOR UNKNOWN INDICATION
     Route: 049
  2. SEROPRAM [Interacting]
     Indication: DRUG USE FOR UNKNOWN INDICATION
     Route: 049
  3. ARICEPT [Interacting]
     Indication: DRUG USE FOR UNKNOWN INDICATION
     Route: 049
  4. LIPANTHYL [Concomitant]
     Route: 049
  5. FOSAMAX [Concomitant]
     Route: 049
  6. ZESTORETIC [Concomitant]
     Route: 049
  7. ZESTORETIC [Concomitant]
     Route: 049
  8. DOLIPRANE [Concomitant]
     Route: 049
  9. CELECTOL [Concomitant]
     Route: 049

REACTIONS (3)
  - CONFUSIONAL STATE [None]
  - DRUG INTERACTION [None]
  - EPILEPSY [None]
